FAERS Safety Report 9770340 (Version 1)
Quarter: 2013Q4

REPORT INFORMATION
  Report Type: Spontaneous
  Country: IT (occurrence: FR)
  Receive Date: 20131218
  Receipt Date: 20131218
  Transmission Date: 20140711
  Serious: Yes (Life-Threatening)
  Sender: FDA-Public Use
  Company Number: FR-FRI-1000052321

PATIENT
  Age: 86 Year
  Sex: Female

DRUGS (6)
  1. NEBIVOLOL [Suspect]
     Dosage: 2.5 MG
     Route: 048
     Dates: end: 20131102
  2. REMINYL [Suspect]
     Dosage: 24 MG
     Route: 048
     Dates: start: 201308, end: 20131102
  3. IPERTEN [Suspect]
     Dosage: 10 MG
     Route: 048
     Dates: end: 20131102
  4. CLOPIDOGREL [Concomitant]
  5. EZETIMIBE/SIMVASTATIN [Concomitant]
  6. VALSARTAN/HYDROCHLOORTHIAZIDE [Concomitant]

REACTIONS (2)
  - Arrhythmia [Recovered/Resolved]
  - Loss of consciousness [Recovered/Resolved]
